FAERS Safety Report 10026261 (Version 2)
Quarter: 2014Q1

REPORT INFORMATION
  Report Type: Spontaneous
  Country: NO (occurrence: NO)
  Receive Date: 20140320
  Receipt Date: 20140324
  Transmission Date: 20141002
  Serious: Yes (Hospitalization, Other)
  Sender: FDA-Public Use
  Company Number: NO-TEVA-467428ISR

PATIENT
  Age: 49 Year
  Sex: Female

DRUGS (1)
  1. SIMVASTATIN [Suspect]
     Indication: HYPERLIPIDAEMIA
     Route: 048
     Dates: start: 20140108, end: 20140117

REACTIONS (5)
  - Hypoaesthesia [Recovering/Resolving]
  - Hypoaesthesia [Recovering/Resolving]
  - Sensory disturbance [Unknown]
  - Headache [Unknown]
  - Photopsia [Unknown]
